FAERS Safety Report 19231892 (Version 2)
Quarter: 2021Q2

REPORT INFORMATION
  Report Type: Spontaneous
  Country: JP (occurrence: JP)
  Receive Date: 20210507
  Receipt Date: 20210617
  Transmission Date: 20210717
  Serious: Yes (Disabling)
  Sender: FDA-Public Use
  Company Number: JP-PFIZER INC-2021466938

PATIENT
  Age: 52 Year
  Sex: Male
  Weight: 68 kg

DRUGS (8)
  1. CHAMPIX [Suspect]
     Active Substance: VARENICLINE TARTRATE
     Indication: NICOTINE DEPENDENCE
     Dosage: 0.5 MG, DAILY (STARTER PACK)
     Route: 048
     Dates: start: 20210303, end: 20210305
  2. VALSARTAN AND AMLODIPINE [Concomitant]
     Active Substance: AMLODIPINE\VALSARTAN
     Indication: HYPERTENSION
     Dosage: 80 MG / 5 MG, DAILY
     Route: 048
  3. CHAMPIX [Suspect]
     Active Substance: VARENICLINE TARTRATE
     Dosage: 1.0 MG, DAILY
     Route: 048
     Dates: start: 20210306, end: 20210309
  4. CHAMPIX [Suspect]
     Active Substance: VARENICLINE TARTRATE
     Dosage: 2.0 MG, DAILY
     Route: 048
     Dates: start: 20210310, end: 20210407
  5. FEBURIC [Concomitant]
     Active Substance: FEBUXOSTAT
     Indication: HYPERURICAEMIA
     Dosage: 10 MG, 1X/DAY
     Route: 048
     Dates: start: 20170206
  6. EXFORGE [Concomitant]
     Active Substance: AMLODIPINE BESYLATE\VALSARTAN
     Indication: HYPERTENSION
     Dosage: UNK, 1X/DAY
     Route: 048
     Dates: start: 20170410
  7. NAUZELIN [Concomitant]
     Active Substance: DOMPERIDONE
     Indication: NAUSEA
     Dosage: 10 MG, AS NEEDED
     Route: 048
     Dates: start: 20210303, end: 20210407
  8. LIPIDIL [Concomitant]
     Active Substance: FENOFIBRATE
     Indication: HYPERLIPIDAEMIA
     Dosage: 80 MG, 1X/DAY
     Route: 048
     Dates: start: 20170206

REACTIONS (5)
  - Pseudoallergic reaction [Recovering/Resolving]
  - Rash [Recovering/Resolving]
  - Pruritus [Recovering/Resolving]
  - Malaise [Recovering/Resolving]
  - Liver disorder [Recovering/Resolving]

NARRATIVE: CASE EVENT DATE: 20210402
